FAERS Safety Report 13083455 (Version 1)
Quarter: 2017Q1

REPORT INFORMATION
  Report Type: Spontaneous
  Country: US (occurrence: US)
  Receive Date: 20170104
  Receipt Date: 20170104
  Transmission Date: 20170428
  Serious: Yes (Other)
  Sender: FDA-Public Use
  Company Number: US-ASTRAZENECA-2016SF37295

PATIENT
  Age: 72 Year
  Sex: Male

DRUGS (4)
  1. OPIATES [Concomitant]
     Active Substance: UNSPECIFIED INGREDIENT
     Indication: PAIN
  2. QUITE A BIT OF PAIN MEDS [Concomitant]
     Indication: PAIN
  3. OXYCONTIN [Concomitant]
     Active Substance: OXYCODONE HYDROCHLORIDE
     Indication: NECK PAIN
     Dosage: OXYCODONE
  4. MOVANTIK [Suspect]
     Active Substance: NALOXEGOL OXALATE
     Indication: CONSTIPATION
     Route: 048
     Dates: start: 20161219

REACTIONS (5)
  - Bone disorder [Unknown]
  - Drug effect variable [Unknown]
  - Tooth disorder [Unknown]
  - Eating disorder [Unknown]
  - Adverse event [Unknown]
